FAERS Safety Report 6436276-9 (Version None)
Quarter: 2009Q4

REPORT INFORMATION
  Report Type: 
  Country: None (occurrence: None)
  Receive Date: 20091111
  Receipt Date: 20091105
  Transmission Date: 20100525
  Serious: Yes (Hospitalization, Disabling)
  Sender: FDA-Public Use
  Company Number: A0815395A

PATIENT
  Age: 26 Year
  Sex: Male

DRUGS (2)
  1. ADVAIR DISKUS 100/50 [Suspect]
     Indication: ASTHMA
     Dosage: 1PUFF TWICE PER DAY
     Route: 055
     Dates: start: 20080501
  2. NO CONCURRENT MEDICATION [Concomitant]

REACTIONS (2)
  - HEPATIC ENZYME INCREASED [None]
  - HEPATIC FIBROSIS [None]
